FAERS Safety Report 4805434-9 (Version None)
Quarter: 2005Q4

REPORT INFORMATION
  Report Type: 
  Country: None (occurrence: None)
  Receive Date: 20051018
  Receipt Date: 20051006
  Transmission Date: 20060501
  Serious: Yes (Other)
  Sender: FDA-Public Use
  Company Number: 2005138347

PATIENT
  Age: 47 Year
  Sex: Male

DRUGS (1)
  1. VFEND [Suspect]
     Indication: OESOPHAGEAL CANDIDIASIS
     Dosage: 400 MG (200 MG, BID), ORAL
     Route: 048

REACTIONS (5)
  - BLISTER INFECTED [None]
  - DERMATITIS BULLOUS [None]
  - OEDEMA PERIPHERAL [None]
  - PHOTOSENSITIVITY REACTION [None]
  - REFUSAL OF TREATMENT BY PATIENT [None]
